FAERS Safety Report 5320250-X (Version None)
Quarter: 2007Q2

REPORT INFORMATION
  Report Type: 
  Country: None (occurrence: None)
  Receive Date: 20070509
  Receipt Date: 20070503
  Transmission Date: 20071010
  Serious: Yes (Hospitalization)
  Sender: FDA-Public Use
  Company Number: CH-ASTRAZENECA-2007PK00952

PATIENT
  Age: 85 Year
  Sex: Female

DRUGS (5)
  1. SEROQUEL [Suspect]
     Route: 048
  2. RISPERDAL [Suspect]
     Route: 048
  3. CIPRALEX [Suspect]
     Route: 048
  4. TRITTICO [Suspect]
     Route: 048
  5. STILNOX [Concomitant]
     Route: 048

REACTIONS (4)
  - DRUG PRESCRIBING ERROR [None]
  - EXTRAPYRAMIDAL DISORDER [None]
  - PARKINSONISM [None]
  - TRANSIENT ISCHAEMIC ATTACK [None]
